FAERS Safety Report 7040179-9 (Version None)
Quarter: 2010Q4

REPORT INFORMATION
  Report Type: 
  Country: None (occurrence: None)
  Receive Date: 20101006
  Receipt Date: 20100927
  Transmission Date: 20110411
  Serious: Yes (Hospitalization)
  Sender: FDA-Public Use
  Company Number: CV20100556

PATIENT
  Age: 25 Year
  Sex: Male

DRUGS (2)
  1. CLINDAMYCIN [Suspect]
     Indication: PERITONSILLAR ABSCESS
  2. METHYLPREDNISOLONE [Concomitant]

REACTIONS (3)
  - EOSINOPHILIA [None]
  - LYMPH NODE PALPABLE [None]
  - RASH MORBILLIFORM [None]
